FAERS Safety Report 15869711 (Version 1)
Quarter: 2019Q1

REPORT INFORMATION
  Report Type: Spontaneous
  Country: US (occurrence: US)
  Receive Date: 20190125
  Receipt Date: 20190125
  Transmission Date: 20190417
  Serious: No
  Sender: FDA-Public Use
  Company Number: US-TARO-2018TAR00211

PATIENT
  Age: 68 Year
  Sex: Female
  Weight: 108.84 kg

DRUGS (6)
  1. SPIRONOLACTONE. [Concomitant]
     Active Substance: SPIRONOLACTONE
  2. ATENOLOL. [Concomitant]
     Active Substance: ATENOLOL
  3. ASPIRIN. [Concomitant]
     Active Substance: ASPIRIN
  4. CLOTRIMAZOLE VAGINAL CREAM USP 1% 7 DAY [Suspect]
     Active Substance: CLOTRIMAZOLE
     Indication: VULVOVAGINAL PRURITUS
     Dosage: ^SMALL AMOUNT,^ UNK
     Route: 067
     Dates: start: 20180309
  5. MULTIVITAMIN [Concomitant]
     Active Substance: VITAMINS
  6. VITAMIN D3 [Concomitant]
     Active Substance: CHOLECALCIFEROL

REACTIONS (3)
  - Product quality issue [Not Recovered/Not Resolved]
  - Vulvovaginal pruritus [Recovering/Resolving]
  - Vulvovaginal burning sensation [Recovering/Resolving]

NARRATIVE: CASE EVENT DATE: 20180309
